FAERS Safety Report 10024294 (Version 1)
Quarter: 2014Q1

REPORT INFORMATION
  Report Type: Spontaneous
  Country: US (occurrence: US)
  Receive Date: 20140320
  Receipt Date: 20140320
  Transmission Date: 20141002
  Serious: No
  Sender: FDA-Public Use
  Company Number: US-B.I. PHARMACEUTICALS,INC./RIDGEFIELD-2014-BI-11261BP

PATIENT
  Age: 68 Year
  Sex: Female

DRUGS (4)
  1. AGGRENOX [Suspect]
     Indication: PROPHYLAXIS
     Dosage: STRENGTH: 25 MG / 200 MG; DAILY DOSE: 50 MG/ 400 MG
     Route: 048
     Dates: start: 2009
  2. PERCOCET [Concomitant]
     Route: 048
  3. ARMOUR THYROID [Concomitant]
     Indication: THYROID DISORDER
     Dosage: 90 MG
     Route: 048
  4. PREMARIN [Concomitant]
     Dosage: 0.625 MG
     Route: 048

REACTIONS (3)
  - Depressed mood [Not Recovered/Not Resolved]
  - Asthenia [Not Recovered/Not Resolved]
  - Nausea [Not Recovered/Not Resolved]
